FAERS Safety Report 4600255-4 (Version None)
Quarter: 2005Q1

REPORT INFORMATION
  Report Type: 
  Country: None (occurrence: None)
  Receive Date: 20050303
  Receipt Date: 20050222
  Transmission Date: 20050727
  Serious: Yes (Hospitalization)
  Sender: FDA-Public Use
  Company Number: 2002SE03539

PATIENT
  Age: 75 Year
  Sex: Female
  Weight: 52 kg

DRUGS (9)
  1. BLOPRESS [Suspect]
     Indication: ESSENTIAL HYPERTENSION
     Dosage: 4 MG QD PO
     Route: 048
     Dates: start: 19990817
  2. NORVASC [Concomitant]
  3. MARGLEID [Concomitant]
  4. ALESION [Concomitant]
  5. BASEN [Concomitant]
  6. CHIKOKAROL [Concomitant]
  7. BUFFERIN [Concomitant]
  8. ASPIRIN [Concomitant]
  9. TAKEPRON [Concomitant]

REACTIONS (10)
  - ANGINA UNSTABLE [None]
  - BLOOD CHOLESTEROL DECREASED [None]
  - BLOOD TRIGLYCERIDES INCREASED [None]
  - BLOOD UREA INCREASED [None]
  - CORONARY ARTERY STENOSIS [None]
  - ELECTROCARDIOGRAM ST SEGMENT DEPRESSION [None]
  - ELECTROCARDIOGRAM T WAVE INVERSION [None]
  - LOW DENSITY LIPOPROTEIN DECREASED [None]
  - PROTEIN URINE PRESENT [None]
  - SUPRAVENTRICULAR EXTRASYSTOLES [None]
